FAERS Safety Report 4976576-2 (Version None)
Quarter: 2006Q2

REPORT INFORMATION
  Report Type: 
  Country: None (occurrence: None)
  Receive Date: 20060419
  Receipt Date: 20060307
  Transmission Date: 20061013
  Serious: Yes (Other)
  Sender: FDA-Public Use
  Company Number: US-MERCK-0603USA01297

PATIENT
  Age: 75 Year
  Sex: Female
  Weight: 64 kg

DRUGS (4)
  1. VIOXX [Suspect]
     Indication: ARTHRITIS
     Route: 048
     Dates: start: 20040201, end: 20040501
  2. PLAVIX [Concomitant]
     Route: 065
  3. NORVASC [Concomitant]
     Route: 065
  4. ISOSORBIDE [Concomitant]
     Route: 065

REACTIONS (2)
  - ANXIETY [None]
  - MYOCARDIAL INFARCTION [None]
